FAERS Safety Report 19697067 (Version 1)
Quarter: 2021Q3

REPORT INFORMATION
  Report Type: Spontaneous
  Country: US (occurrence: US)
  Receive Date: 20210813
  Receipt Date: 20210813
  Transmission Date: 20211014
  Serious: Yes (Death, Hospitalization)
  Sender: FDA-Public Use
  Company Number: None

PATIENT
  Age: 17 Year
  Sex: Male
  Weight: 128.8 kg

DRUGS (22)
  1. FENTANYL. [Concomitant]
     Active Substance: FENTANYL
  2. NOREPINEPHRINE. [Concomitant]
     Active Substance: NOREPINEPHRINE
  3. VASOPRESSIN. [Concomitant]
     Active Substance: VASOPRESSIN
  4. AMPHOTERICINE [Concomitant]
     Active Substance: AMPHOTERICIN B
  5. EPINEPHRINE. [Suspect]
     Active Substance: EPINEPHRINE
  6. MICAFUNGIN. [Concomitant]
     Active Substance: MICAFUNGIN SODIUM
  7. CAFEPIME [Concomitant]
  8. CYTARABINE. [Suspect]
     Active Substance: CYTARABINE
     Dates: end: 20210614
  9. METHOTREXATE. [Suspect]
     Active Substance: METHOTREXATE
     Dates: end: 20210622
  10. ACYCLOVIR. [Concomitant]
     Active Substance: ACYCLOVIR
  11. DEXAMETHASONE. [Concomitant]
     Active Substance: DEXAMETHASONE
  12. TOCILIZUMAB. [Concomitant]
     Active Substance: TOCILIZUMAB
  13. PREDNISOLONE. [Suspect]
     Active Substance: PREDNISOLONE
     Dates: end: 20210712
  14. BACTRIM [Concomitant]
     Active Substance: SULFAMETHOXAZOLE\TRIMETHOPRIM
  15. DOPAMINE [Concomitant]
     Active Substance: DOPAMINE HYDROCHLORIDE
  16. KETAMINE [Concomitant]
     Active Substance: KETAMINE
  17. DAUNORUBICIN [Suspect]
     Active Substance: DAUNORUBICIN
     Dates: end: 20210707
  18. ONCASPAR [Suspect]
     Active Substance: PEGASPARGASE
     Dates: end: 20210717
  19. SARGAMOSTIN [Concomitant]
  20. VANCOMYCIN [Concomitant]
     Active Substance: VANCOMYCIN
  21. VINCRISTINE SULFATE. [Suspect]
     Active Substance: VINCRISTINE SULFATE
     Dates: end: 20210707
  22. MORPHINE [Concomitant]
     Active Substance: MORPHINE

REACTIONS (29)
  - B precursor type acute leukaemia [None]
  - Abdominal pain [None]
  - Blood bilirubin increased [None]
  - General physical health deterioration [None]
  - Minimal residual disease [None]
  - Bradycardia [None]
  - Aspergillus test positive [None]
  - Cardiac arrest [None]
  - Nausea [None]
  - Tachycardia [None]
  - Herpes simplex test positive [None]
  - Candida test positive [None]
  - Blood pressure measurement [None]
  - Vomiting [None]
  - Hyponatraemia [None]
  - Muscular weakness [None]
  - Pancreatitis acute [None]
  - Oliguria [None]
  - Respiratory distress [None]
  - Systemic mycosis [None]
  - Multiple organ dysfunction syndrome [None]
  - Arrhythmia [None]
  - Respiratory failure [None]
  - Distributive shock [None]
  - Sepsis [None]
  - Hypovolaemic shock [None]
  - Inappropriate antidiuretic hormone secretion [None]
  - Serum ferritin increased [None]
  - Hyperbilirubinaemia [None]
